FAERS Safety Report 9087201 (Version 1)
Quarter: 2013Q1

REPORT INFORMATION
  Report Type: Spontaneous
  Country: US (occurrence: US)
  Receive Date: 20130131
  Receipt Date: 20130131
  Transmission Date: 20140127
  Serious: Yes (Other)
  Sender: FDA-Public Use
  Company Number: US-PFIZER INC-2013038691

PATIENT
  Age: 75 Year
  Sex: Female
  Weight: 88.89 kg

DRUGS (5)
  1. LYRICA [Suspect]
     Indication: SPINAL COLUMN STENOSIS
     Dosage: 100 MG, 1X/DAY
     Dates: start: 20130122, end: 20130123
  2. LYRICA [Suspect]
     Indication: SPINAL PAIN
  3. LYRICA [Suspect]
     Indication: NERVOUS SYSTEM DISORDER
  4. VICODIN [Concomitant]
     Indication: PAIN
     Dosage: 500 MG, 1X/DAY
  5. TRAMADOL [Concomitant]
     Indication: PAIN
     Dosage: 200 MG, DAILY

REACTIONS (8)
  - Metamorphopsia [Recovered/Resolved]
  - Lethargy [Not Recovered/Not Resolved]
  - Vision blurred [Recovered/Resolved]
  - Dizziness [Not Recovered/Not Resolved]
  - Nausea [Not Recovered/Not Resolved]
  - Heat exhaustion [Not Recovered/Not Resolved]
  - Malaise [Unknown]
  - Drug ineffective [Unknown]
